FAERS Safety Report 4993437-3 (Version None)
Quarter: 2006Q2

REPORT INFORMATION
  Report Type: 
  Country: None (occurrence: None)
  Receive Date: 20060503
  Receipt Date: 20060503
  Transmission Date: 20061013
  Serious: Yes (Hospitalization)
  Sender: FDA-Public Use
  Company Number: None

PATIENT
  Age: 42 Year
  Sex: Female
  Weight: 62.1428 kg

DRUGS (8)
  1. ADRIAMYCIN PFS [Suspect]
     Indication: SYNOVIAL SARCOMA
     Dosage: 75MG/M2
     Dates: start: 20060420, end: 20060422
  2. IFOSFAMIDE [Suspect]
     Dosage: 2.5 MG/M2
  3. VICODIN [Concomitant]
  4. EMLA [Concomitant]
  5. COMPAZINE [Concomitant]
  6. ATIVAN [Concomitant]
  7. KYTRIL [Concomitant]
  8. DEXAMETHASONE [Concomitant]

REACTIONS (4)
  - DYSPHAGIA [None]
  - NEUTROPENIA [None]
  - OESOPHAGEAL PAIN [None]
  - ORAL INTAKE REDUCED [None]
